FAERS Safety Report 5202164-9 (Version None)
Quarter: 2007Q1

REPORT INFORMATION
  Report Type: 
  Country: None (occurrence: None)
  Receive Date: 20070109
  Receipt Date: 20070103
  Transmission Date: 20070707
  Serious: Yes (Death, Congenital Anomaly)
  Sender: FDA-Public Use
  Company Number: 2007SE00031

PATIENT

DRUGS (1)
  1. ATACAND [Suspect]
     Route: 064
     Dates: start: 20060101, end: 20070102

REACTIONS (2)
  - DRUG EXPOSURE DURING PREGNANCY [None]
  - IMMATURE RESPIRATORY SYSTEM [None]
